FAERS Safety Report 7574041-X (Version None)
Quarter: 2011Q2

REPORT INFORMATION
  Report Type: 
  Country: None (occurrence: None)
  Receive Date: 20110627
  Receipt Date: 20110105
  Transmission Date: 20111010
  Serious: Yes (Other)
  Sender: FDA-Public Use
  Company Number: US-BAYER-200943249NA

PATIENT
  Age: 37 Year
  Sex: Female
  Weight: 65.76 kg

DRUGS (13)
  1. YASMIN [Suspect]
     Route: 048
     Dates: start: 20050801, end: 20090815
  2. OMEPRAZOLE [Concomitant]
  3. CLINDAMYCIN [Concomitant]
     Dates: start: 20091201
  4. CARAFATE [Concomitant]
  5. NSAID'S [Concomitant]
  6. YAZ [Suspect]
     Route: 048
     Dates: start: 20070901, end: 20090908
  7. REGLAN [Concomitant]
     Indication: HEPATIC CYST
  8. ZYRTEC [Concomitant]
     Indication: MULTIPLE ALLERGIES
     Dates: start: 19970101, end: 20100615
  9. ASCORBIC ACID [Concomitant]
  10. NEXIUM [Concomitant]
     Indication: GASTROOESOPHAGEAL REFLUX DISEASE
     Dates: start: 20080101
  11. PROVENTIL [Concomitant]
     Dates: start: 20070301
  12. MELOXICAM [Concomitant]
     Dates: start: 20081101
  13. AMOXICILLIN [Concomitant]
     Dates: start: 20061101

REACTIONS (6)
  - BILIARY COLIC [None]
  - CHOLECYSTITIS CHRONIC [None]
  - NAUSEA [None]
  - DYSPEPSIA [None]
  - SPHINCTER OF ODDI DYSFUNCTION [None]
  - ABDOMINAL PAIN UPPER [None]
